FAERS Safety Report 7739413-9 (Version None)
Quarter: 2011Q3

REPORT INFORMATION
  Report Type: 
  Country: None (occurrence: None)
  Receive Date: 20110909
  Receipt Date: 20110830
  Transmission Date: 20111222
  Serious: Yes (Other)
  Sender: FDA-Public Use
  Company Number: US-JNJFOC-20110902790

PATIENT
  Sex: Female
  Weight: 86.18 kg

DRUGS (2)
  1. UNSPECIFIED FENTANYL TRANSDERMAL SYTEM [Suspect]
     Indication: PRODUCT USED FOR UNKNOWN INDICATION
     Route: 062
  2. FENTANYL-100 [Suspect]
     Indication: BACK PAIN
     Route: 062

REACTIONS (7)
  - DYSPNOEA [None]
  - ASPHYXIA [None]
  - HYPERSENSITIVITY [None]
  - APPLICATION SITE EROSION [None]
  - RASH [None]
  - APPLICATION SITE RASH [None]
  - PRODUCT ADHESION ISSUE [None]
